FAERS Safety Report 21079839 (Version 1)
Quarter: 2022Q3

REPORT INFORMATION
  Report Type: Spontaneous
  Country: AU (occurrence: AU)
  Receive Date: 20220714
  Receipt Date: 20220714
  Transmission Date: 20221026
  Serious: Yes (Other)
  Sender: FDA-Public Use
  Company Number: AU-LUPIN PHARMACEUTICALS INC.-2022-09460

PATIENT
  Age: 21 Year
  Sex: Female

DRUGS (5)
  1. CEPHALEXIN [Suspect]
     Active Substance: CEPHALEXIN
     Indication: Tonsillitis
     Dosage: UNK
     Route: 048
  2. PENICILLIN [Concomitant]
     Active Substance: PENICILLIN
     Indication: Antibiotic therapy
     Dosage: UNK
     Route: 042
  3. METRONIDAZOLE [Concomitant]
     Active Substance: METRONIDAZOLE
     Indication: Antibiotic therapy
     Dosage: UNK
     Route: 065
  4. ENOXAPARIN SODIUM [Concomitant]
     Active Substance: ENOXAPARIN SODIUM
     Indication: Anticoagulant therapy
     Dosage: UNK
     Route: 065
  5. WARFARIN [Concomitant]
     Active Substance: WARFARIN
     Indication: Anticoagulant therapy
     Dosage: UNK
     Route: 065

REACTIONS (2)
  - Drug ineffective for unapproved indication [Unknown]
  - Off label use [Unknown]
